FAERS Safety Report 16697226 (Version 2)
Quarter: 2019Q3

REPORT INFORMATION
  Report Type: Spontaneous
  Country: US (occurrence: US)
  Receive Date: 20190813
  Receipt Date: 20190919
  Transmission Date: 20191004
  Serious: No
  Sender: FDA-Public Use
  Company Number: US-JNJFOC-20190811636

PATIENT
  Age: 76 Year
  Sex: Male
  Weight: 81.72 kg

DRUGS (4)
  1. NIZORAL [Suspect]
     Active Substance: KETOCONAZOLE
     Indication: SKIN ULCER
     Route: 061
     Dates: start: 2018
  2. ESCITALOPRAM [Concomitant]
     Active Substance: ESCITALOPRAM OXALATE
  3. METOPROLOL. [Concomitant]
     Active Substance: METOPROLOL
     Indication: CARDIAC ANEURYSM
  4. ATORVASTATIN [Concomitant]
     Active Substance: ATORVASTATIN
     Indication: CARDIAC ANEURYSM

REACTIONS (6)
  - Wrong technique in product usage process [Recovered/Resolved]
  - Product label issue [Unknown]
  - Drug ineffective [Unknown]
  - Pruritus [Unknown]
  - Alopecia [Unknown]
  - Product label confusion [Unknown]

NARRATIVE: CASE EVENT DATE: 2018
